FAERS Safety Report 14061775 (Version 1)
Quarter: 2017Q4

REPORT INFORMATION
  Report Type: Spontaneous
  Country: US (occurrence: US)
  Receive Date: 20171009
  Receipt Date: 20171009
  Transmission Date: 20180321
  Serious: No
  Sender: FDA-Public Use
  Company Number: US-TEVA-752780ACC

PATIENT
  Sex: Male

DRUGS (1)
  1. ALLOPURINOL. [Suspect]
     Active Substance: ALLOPURINOL
     Indication: GOUT
     Route: 065
     Dates: start: 2015

REACTIONS (4)
  - Hepatic enzyme increased [Unknown]
  - Chromaturia [Unknown]
  - Product colour issue [Unknown]
  - Hepatic steatosis [Unknown]
